FAERS Safety Report 4275971-7 (Version None)
Quarter: 2004Q1

REPORT INFORMATION
  Report Type: 
  Country: None (occurrence: None)
  Receive Date: 20040121
  Receipt Date: 20030423
  Transmission Date: 20041129
  Serious: No
  Sender: FDA-Public Use
  Company Number: US-GLAXOSMITHKLINE-A0406026A

PATIENT
  Age: 32 Year
  Sex: Female

DRUGS (2)
  1. VALTREX [Suspect]
     Dosage: 1000MG TWICE PER DAY
     Route: 048
     Dates: start: 20030418, end: 20030422
  2. PAXIL [Concomitant]

REACTIONS (2)
  - DIZZINESS [None]
  - NAUSEA [None]
